FAERS Safety Report 6932289-9 (Version None)
Quarter: 2010Q3

REPORT INFORMATION
  Report Type: 
  Country: None (occurrence: None)
  Receive Date: 20100819
  Receipt Date: 20100812
  Transmission Date: 20110219
  Serious: Yes (Disabling)
  Sender: FDA-Public Use
  Company Number: NL-ROCHE-720857

PATIENT
  Sex: Male
  Weight: 92 kg

DRUGS (2)
  1. XELODA [Suspect]
     Route: 048
     Dates: start: 20100101
  2. OXALIPLATIN [Suspect]
     Dosage: FORM, ROUTE AND FREQUENCY: NOT PROVIDED
     Route: 042
     Dates: start: 20100101

REACTIONS (1)
  - OPTIC ISCHAEMIC NEUROPATHY [None]
